FAERS Safety Report 24400817 (Version 1)
Quarter: 2024Q4

REPORT INFORMATION
  Report Type: Report from Study
  Country: US (occurrence: US)
  Receive Date: 20241006
  Receipt Date: 20241006
  Transmission Date: 20250115
  Serious: Yes (Hospitalization)
  Sender: BAYER
  Company Number: US-BAYER-2024A140977

PATIENT
  Age: 66 Year
  Sex: Female

DRUGS (1)
  1. KERENDIA [Suspect]
     Active Substance: FINERENONE
     Indication: Chronic kidney disease
     Dosage: UNK

REACTIONS (3)
  - Malaise [Unknown]
  - Haemorrhage [None]
  - Bladder disorder [None]

NARRATIVE: CASE EVENT DATE: 20240929
